FAERS Safety Report 17522012 (Version 2)
Quarter: 2020Q2

REPORT INFORMATION
  Report Type: Spontaneous
  Country: US (occurrence: US)
  Receive Date: 20200310
  Receipt Date: 20200429
  Transmission Date: 20200713
  Serious: No
  Sender: FDA-Public Use
  Company Number: US-FARMAPROD-201912-2063

PATIENT
  Sex: Female
  Weight: 68.1 kg

DRUGS (5)
  1. OXERVATE [Suspect]
     Active Substance: CENEGERMIN-BKBJ
     Route: 047
     Dates: start: 20191120, end: 20191211
  2. FAMVIR [Concomitant]
     Active Substance: FAMCICLOVIR
     Indication: HERPES OPHTHALMIC
     Dates: start: 20180510
  3. DUREZOL [Concomitant]
     Active Substance: DIFLUPREDNATE
     Indication: KERATOPLASTY
     Dates: start: 20190224
  4. TIMOLOL. [Concomitant]
     Active Substance: TIMOLOL
     Indication: INTRAOCULAR PRESSURE INCREASED
     Dates: start: 20181102
  5. ALPHAGAN P [Concomitant]
     Active Substance: BRIMONIDINE TARTRATE
     Indication: INTRAOCULAR PRESSURE INCREASED
     Dates: start: 20190904

REACTIONS (1)
  - Ocular discomfort [Recovered/Resolved]
